FAERS Safety Report 12554634 (Version 6)
Quarter: 2016Q4

REPORT INFORMATION
  Report Type: Report from Study
  Country: CA (occurrence: CA)
  Receive Date: 20160713
  Receipt Date: 20161004
  Transmission Date: 20170207
  Serious: Yes (Other)
  Sender: FDA-Public Use
  Company Number: PHHY2015CA159353

PATIENT
  Age: 48 Year
  Sex: Female

DRUGS (3)
  1. SANDOSTATIN LAR DEPOT [Suspect]
     Active Substance: OCTREOTIDE ACETATE
     Indication: ACROMEGALY
     Dosage: 20 MG, QMO, EVERY FOUR WEEKS
     Route: 030
     Dates: start: 20151102
  2. CABERGOLINE. [Concomitant]
     Active Substance: CABERGOLINE
     Indication: PRODUCT USED FOR UNKNOWN INDICATION
     Dosage: 0.5 MG, QW (ONCE A WEEK)
     Route: 065
  3. SANDOSTATIN LAR DEPOT [Suspect]
     Active Substance: OCTREOTIDE ACETATE
     Indication: PITUITARY TUMOUR BENIGN
     Dosage: 30 MG, QMO (ONCE A MONTH)
     Route: 030
     Dates: start: 20160209, end: 20160826

REACTIONS (16)
  - Malaise [Unknown]
  - Abdominal pain [Recovered/Resolved]
  - Blood urine present [Unknown]
  - Cough [Unknown]
  - Diarrhoea [Recovered/Resolved]
  - Insulin-like growth factor increased [Unknown]
  - Corynebacterium infection [Unknown]
  - Bowel movement irregularity [Unknown]
  - Abdominal distension [Recovered/Resolved]
  - White blood cell count decreased [Unknown]
  - Blood pressure increased [Unknown]
  - Nausea [Recovered/Resolved]
  - Abdominal pain [Unknown]
  - Night sweats [Unknown]
  - Glucose tolerance impaired [Unknown]
  - Migraine [Unknown]

NARRATIVE: CASE EVENT DATE: 20151103
